FAERS Safety Report 23956341 (Version 1)
Quarter: 2024Q2

REPORT INFORMATION
  Report Type: Spontaneous
  Country: JP (occurrence: JP)
  Receive Date: 20240610
  Receipt Date: 20240610
  Transmission Date: 20240716
  Serious: Yes (Hospitalization, Other)
  Sender: FDA-Public Use
  Company Number: JP-002147023-NVSJ2024JP006587

PATIENT
  Sex: Female
  Weight: 2.91 kg

DRUGS (9)
  1. ILARIS [Suspect]
     Active Substance: CANAKINUMAB
     Indication: Foetal exposure during pregnancy
     Dosage: MATERNAL  EXPOSURE DURING  PREGNANCY: 150 MG
     Route: 064
     Dates: start: 20220722
  2. ILARIS [Suspect]
     Active Substance: CANAKINUMAB
     Dosage: MATERNAL  EXPOSURE DURING  PREGNANCY: 150 MG
     Route: 064
     Dates: start: 20220902
  3. ILARIS [Suspect]
     Active Substance: CANAKINUMAB
     Dosage: MATERNAL  EXPOSURE DURING  PREGNANCY: 150 MG
     Route: 064
     Dates: start: 20220930
  4. ILARIS [Suspect]
     Active Substance: CANAKINUMAB
     Dosage: MATERNAL  EXPOSURE DURING  PREGNANCY: 150 MG
     Route: 064
     Dates: start: 20221028, end: 20221125
  5. COLCHICINE [Concomitant]
     Active Substance: COLCHICINE
     Indication: Foetal exposure during pregnancy
     Dosage: MATERNAL  EXPOSURE DURING  PREGNANCY:0.25 MG
     Route: 064
     Dates: start: 20200429, end: 20230307
  6. PREDONINE [Concomitant]
     Active Substance: PREDNISOLONE
     Indication: Foetal exposure during pregnancy
     Dosage: MATERNAL  EXPOSURE DURING  PREGNANCY:7 MG
     Route: 064
  7. PREDONINE [Concomitant]
     Active Substance: PREDNISOLONE
     Dosage: MATERNAL  EXPOSURE DURING  PREGNANCY:10 MG
     Route: 064
  8. NEXIUM [Concomitant]
     Active Substance: ESOMEPRAZOLE MAGNESIUM
     Indication: Foetal exposure during pregnancy
     Dosage: MATERNAL  EXPOSURE DURING  PREGNANCY:UNK
     Route: 064
     Dates: end: 20230307
  9. URSODIOL [Concomitant]
     Active Substance: URSODIOL
     Indication: Foetal exposure during pregnancy
     Dosage: MATERNAL  EXPOSURE DURING  PREGNANCY:UNK
     Route: 064
     Dates: end: 20230307

REACTIONS (3)
  - Pneumonia [Unknown]
  - Pyrexia [Unknown]
  - Foetal exposure during pregnancy [Unknown]
